FAERS Safety Report 5371495-4 (Version None)
Quarter: 2007Q2

REPORT INFORMATION
  Report Type: 
  Country: None (occurrence: None)
  Receive Date: 20070622
  Receipt Date: 20070608
  Transmission Date: 20071010
  Serious: Yes (Other)
  Sender: FDA-Public Use
  Company Number: CHPA2007US06763

PATIENT
  Age: 53 Year
  Sex: Male
  Weight: 104.3 kg

DRUGS (4)
  1. NICOTINE [Suspect]
     Indication: SMOKING CESSATION THERAPY
     Dosage: 21 MG, QD, TRANSDERMAL
     Route: 062
     Dates: start: 20070510, end: 20070529
  2. HERBAL PREPARATION (NO INGREDIENTS/SUBSTANCES) [Concomitant]
  3. LICORICE (GLYCYRRHIZA GLABRA) [Concomitant]
  4. DRUG THERAPY NOS (DRUG THERAPY NOS) [Concomitant]

REACTIONS (12)
  - ABDOMINAL DISTENSION [None]
  - COUGH [None]
  - DYSPNOEA [None]
  - FLUID RETENTION [None]
  - HEPATIC FAILURE [None]
  - OEDEMA PERIPHERAL [None]
  - PAROSMIA [None]
  - PHARMACEUTICAL PRODUCT COMPLAINT [None]
  - RENAL FAILURE [None]
  - RENAL PAIN [None]
  - VOMITING [None]
  - WEIGHT INCREASED [None]
